FAERS Safety Report 21990510 (Version 2)
Quarter: 2023Q1

REPORT INFORMATION
  Report Type: Spontaneous
  Country: GB (occurrence: GB)
  Receive Date: 20230214
  Receipt Date: 20230309
  Transmission Date: 20230417
  Serious: Yes (Death, Hospitalization, Other)
  Sender: FDA-Public Use
  Company Number: GB-TAKEDA-2023TUS014022

PATIENT
  Age: 85 Year
  Sex: Female

DRUGS (1)
  1. ENTYVIO [Suspect]
     Active Substance: VEDOLIZUMAB
     Indication: Crohn^s disease
     Dosage: 300 MILLIGRAM, Q4WEEKS
     Route: 042
     Dates: start: 20230203

REACTIONS (5)
  - General physical health deterioration [Unknown]
  - Hypophagia [Unknown]
  - Pneumonia [Unknown]
  - Death [Fatal]
  - Poor venous access [Unknown]

NARRATIVE: CASE EVENT DATE: 20230208
